FAERS Safety Report 13951293 (Version 5)
Quarter: 2018Q3

REPORT INFORMATION
  Report Type: Report from Study
  Country: CA (occurrence: CA)
  Receive Date: 20170908
  Receipt Date: 20180808
  Transmission Date: 20181010
  Serious: Yes (Hospitalization, Other)
  Sender: FDA-Public Use
  Company Number: CA-INCYTE CORPORATION-2016IN008048

PATIENT

DRUGS (4)
  1. JAKAVI [Suspect]
     Active Substance: RUXOLITINIB
     Indication: MYELOFIBROSIS
     Dosage: 20 MG, BID
     Route: 048
     Dates: start: 20161107
  2. JAKAVI [Suspect]
     Active Substance: RUXOLITINIB
     Dosage: 10 MG, BID
     Route: 048
  3. JAKAVI [Suspect]
     Active Substance: RUXOLITINIB
     Dosage: 20 MG, BID
     Route: 048
     Dates: start: 201611
  4. JAKAVI [Suspect]
     Active Substance: RUXOLITINIB
     Dosage: 15 MG, BID
     Route: 048
     Dates: start: 20180723

REACTIONS (13)
  - Dyspnoea [Unknown]
  - Asthenia [Unknown]
  - Anaemia [Unknown]
  - Haemoglobin decreased [Not Recovered/Not Resolved]
  - Gout [Unknown]
  - Fall [Unknown]
  - Fatigue [Unknown]
  - Splenomegaly [Unknown]
  - Pulmonary embolism [Unknown]
  - Weight increased [Unknown]
  - Localised infection [Unknown]
  - Heart rate decreased [Unknown]
  - Pain [Unknown]

NARRATIVE: CASE EVENT DATE: 201708
